FAERS Safety Report 13756415 (Version 1)
Quarter: 2017Q3

REPORT INFORMATION
  Report Type: Spontaneous
  Country: PT (occurrence: PT)
  Receive Date: 20170714
  Receipt Date: 20170714
  Transmission Date: 20171127
  Serious: Yes (Death, Other)
  Sender: FDA-Public Use
  Company Number: PT-GLAXOSMITHKLINE-PT2017GSK108015

PATIENT
  Age: 76 Year
  Sex: Female

DRUGS (3)
  1. CEFUROXIM [Suspect]
     Active Substance: CEFUROXIME
     Indication: RESPIRATORY TRACT INFECTION
  2. DEXIBUPROFEN [Suspect]
     Active Substance: DEXIBUPROFEN
  3. PARACETAMOL [Suspect]
     Active Substance: ACETAMINOPHEN

REACTIONS (4)
  - Dermatitis bullous [Unknown]
  - Toxic epidermal necrolysis [Fatal]
  - Rash pruritic [Unknown]
  - Mouth ulceration [Unknown]
